FAERS Safety Report 15434941 (Version 1)
Quarter: 2018Q3

REPORT INFORMATION
  Report Type: Spontaneous
  Country: US (occurrence: US)
  Receive Date: 20180923
  Receipt Date: 20180923
  Transmission Date: 20181010
  Serious: Yes (Other)
  Sender: FDA-Public Use
  Company Number: None

PATIENT
  Age: 35 Year
  Sex: Male
  Weight: 80.1 kg

DRUGS (2)
  1. PREDNISONE 20 MG TABLET [Suspect]
     Active Substance: PREDNISONE
     Indication: FATIGUE
     Route: 048
     Dates: start: 20180921, end: 20180923
  2. PREDNISONE 20 MG TABLET [Suspect]
     Active Substance: PREDNISONE
     Indication: ASTHENIA
     Route: 048
     Dates: start: 20180921, end: 20180923

REACTIONS (3)
  - Hiccups [None]
  - Poor quality sleep [None]
  - Middle insomnia [None]

NARRATIVE: CASE EVENT DATE: 20180922
